FAERS Safety Report 9640091 (Version 2)
Quarter: 2013Q4

REPORT INFORMATION
  Report Type: Report from Study
  Country: US (occurrence: US)
  Receive Date: 20131023
  Receipt Date: 20131023
  Transmission Date: 20140711
  Serious: Yes (Hospitalization, Other)
  Sender: FDA-Public Use
  Company Number: PHHO2012US001089

PATIENT
  Age: 57 Year
  Sex: Male

DRUGS (1)
  1. SOM230 [Suspect]
     Indication: PANCREATIC CARCINOMA
     Dosage: 900 MG, BID
     Route: 058
     Dates: start: 20120104

REACTIONS (4)
  - Renal failure acute [Recovered/Resolved]
  - Ascites [Recovered/Resolved]
  - Pancreatic leak [Recovered/Resolved]
  - Sepsis [Recovered/Resolved]
